FAERS Safety Report 16730720 (Version 1)
Quarter: 2019Q3

REPORT INFORMATION
  Report Type: Spontaneous
  Country: US (occurrence: US)
  Receive Date: 20190822
  Receipt Date: 20190822
  Transmission Date: 20191005
  Serious: Yes (Other)
  Sender: FDA-Public Use
  Company Number: US-PFIZER INC-2019354674

PATIENT
  Sex: Female

DRUGS (1)
  1. VERAPAMIL HCL [Suspect]
     Active Substance: VERAPAMIL HYDROCHLORIDE
     Dosage: 180 MG, 1X/DAY, ( CURRENTLY TAKING 180 MG VERAPAMIL IN THE MORNING)

REACTIONS (2)
  - Migraine [Unknown]
  - Cardiac flutter [Unknown]
